FAERS Safety Report 7603809-6 (Version None)
Quarter: 2011Q3

REPORT INFORMATION
  Report Type: 
  Country: None (occurrence: None)
  Receive Date: 20110712
  Receipt Date: 20110705
  Transmission Date: 20111222
  Serious: Yes (Other)
  Sender: FDA-Public Use
  Company Number: US-GLAXOSMITHKLINE-A0936353A

PATIENT
  Age: 57 Year
  Sex: Female
  Weight: 54.5 kg

DRUGS (16)
  1. ASCORBIC ACID [Concomitant]
  2. CHOLESTOFF [Concomitant]
  3. TYKERB [Suspect]
     Dosage: 1250MG PER DAY
     Route: 048
  4. BONIVA [Concomitant]
  5. SUPPLEMENT [Concomitant]
  6. XELODA [Suspect]
     Route: 065
  7. EFFEXOR [Concomitant]
  8. CARVEDILOL [Concomitant]
  9. PROCHLORPERAZINE TAB [Concomitant]
  10. ASCORBIC ACID [Concomitant]
  11. SIMVASTATIN [Concomitant]
  12. MULTI-VITAMIN [Concomitant]
  13. MAGNESIUM [Concomitant]
  14. CALCIUM GLUCONATE [Concomitant]
  15. SUPPLEMENT [Concomitant]
  16. OXYCODONE AND ACETAMINOPHEN [Concomitant]

REACTIONS (1)
  - CARDIAC FAILURE [None]
